FAERS Safety Report 7526131-5 (Version None)
Quarter: 2011Q2

REPORT INFORMATION
  Report Type: 
  Country: None (occurrence: None)
  Receive Date: 20110606
  Receipt Date: 20110524
  Transmission Date: 20111010
  Serious: Yes (Other)
  Sender: FDA-Public Use
  Company Number: JP-CELGENEUS-087-21880-10092748

PATIENT
  Sex: Female
  Weight: 44.8 kg

DRUGS (31)
  1. REVLIMID [Suspect]
     Indication: MULTIPLE MYELOMA
     Dosage: 10 MILLIGRAM
     Route: 048
     Dates: start: 20100819, end: 20100908
  2. MYCOSYST [Concomitant]
     Indication: PROPHYLAXIS
     Dosage: 200 MILLIGRAM
     Route: 048
     Dates: start: 20100819, end: 20100916
  3. AMITRIPTYLINE HCL [Concomitant]
     Dosage: 30 MILLIGRAM
     Route: 048
     Dates: start: 20100917, end: 20101110
  4. OMEPRAZOLE [Concomitant]
     Indication: PROPHYLAXIS
     Dosage: 20 MILLIGRAM
     Route: 048
     Dates: start: 20100819, end: 20100916
  5. DEXAMETHASONE [Concomitant]
     Dosage: 20 MILLIGRAM
     Route: 048
     Dates: start: 20100917, end: 20100920
  6. VICCLOX [Concomitant]
     Indication: PROPHYLAXIS
     Dosage: 400 MILLIGRAM
     Route: 048
     Dates: start: 20100819, end: 20100916
  7. VICCLOX [Concomitant]
     Dosage: 400 MILLIGRAM
     Route: 048
     Dates: start: 20100917, end: 20101110
  8. PURSENNID [Concomitant]
     Indication: MULTIPLE MYELOMA
     Dosage: 12 MILLIGRAM
     Route: 048
     Dates: start: 20100819, end: 20100916
  9. BACTRIM [Concomitant]
     Indication: PROPHYLAXIS
     Dosage: 1 TABLET
     Route: 048
     Dates: start: 20100819, end: 20100916
  10. MYCOSYST [Concomitant]
     Dosage: 200 MILLIGRAM
     Route: 048
     Dates: start: 20100917, end: 20101110
  11. AMITRIPTYLINE HCL [Concomitant]
     Indication: MULTIPLE MYELOMA
     Dosage: 30 MILLIGRAM
     Route: 048
     Dates: start: 20100819, end: 20100916
  12. AMOBAN [Concomitant]
     Indication: MULTIPLE MYELOMA
     Dosage: 7.5 MILLIGRAM
     Route: 048
     Dates: start: 20100819, end: 20100916
  13. MAGMITT [Concomitant]
     Indication: MULTIPLE MYELOMA
     Dosage: 660 MILLIGRAM
     Route: 048
     Dates: start: 20100819, end: 20100916
  14. SELBEX [Concomitant]
     Dosage: 100 MILLIGRAM
     Route: 048
     Dates: start: 20100917, end: 20101110
  15. OMEPRAZOLE [Concomitant]
     Dosage: 20 MILLIGRAM
     Route: 048
     Dates: start: 20100917, end: 20101110
  16. REVLIMID [Suspect]
     Dosage: 5 MILLIGRAM
     Route: 048
     Dates: start: 20100917, end: 20101007
  17. DEXAMETHASONE [Concomitant]
     Dosage: 20 MILLIGRAM
     Route: 048
     Dates: start: 20100819, end: 20100822
  18. DEXAMETHASONE [Concomitant]
     Dosage: 20 MILLIGRAM
     Route: 048
     Dates: start: 20101014, end: 20101017
  19. LOXONIN [Concomitant]
     Indication: MULTIPLE MYELOMA
     Dosage: 120 MILLIGRAM
     Route: 048
     Dates: start: 20100819, end: 20100916
  20. FENTANYL [Concomitant]
     Dosage: 16.8 MILLIGRAM
     Route: 061
     Dates: start: 20100917, end: 20101110
  21. DEXAMETHASONE [Concomitant]
     Dosage: 20 MILLIGRAM
     Route: 048
     Dates: start: 20100904, end: 20100907
  22. DEXAMETHASONE [Concomitant]
     Dosage: 20 MILLIGRAM
     Route: 048
     Dates: start: 20101001, end: 20101004
  23. LOXONIN [Concomitant]
     Dosage: 120 MILLIGRAM
     Route: 048
     Dates: start: 20100917, end: 20101110
  24. AMOBAN [Concomitant]
     Dosage: 7.5 MILLIGRAM
     Route: 048
     Dates: start: 20100917, end: 20101110
  25. REVLIMID [Suspect]
     Dosage: 10 MILLIGRAM
     Route: 048
     Dates: start: 20101014, end: 20101103
  26. DEXAMETHASONE [Concomitant]
     Dosage: 20 MILLIGRAM
     Route: 048
     Dates: start: 20100827, end: 20100830
  27. DEPAKENE [Concomitant]
     Indication: MULTIPLE MYELOMA
     Dosage: 400 MILLIGRAM
     Route: 048
     Dates: start: 20100819, end: 20100916
  28. DEPAKENE [Concomitant]
     Dosage: 400 MILLIGRAM
     Route: 048
     Dates: start: 20100917, end: 20101110
  29. FENTANYL [Concomitant]
     Indication: MULTIPLE MYELOMA
     Dosage: 16.8 MILLIGRAM
     Route: 061
     Dates: start: 20100819, end: 20100916
  30. BACTRIM [Concomitant]
     Dosage: 1 TABLET
     Route: 048
     Dates: start: 20100917, end: 20101110
  31. SELBEX [Concomitant]
     Indication: PROPHYLAXIS
     Dosage: 100 MILLIGRAM
     Route: 048
     Dates: start: 20100819, end: 20100916

REACTIONS (8)
  - THROMBOCYTOPENIA [None]
  - HYPOCALCAEMIA [None]
  - STOMATITIS [None]
  - CONSTIPATION [None]
  - PNEUMONIA [None]
  - RENAL TUBULAR ACIDOSIS [None]
  - ANAEMIA [None]
  - NEUTROPENIA [None]
